FAERS Safety Report 14867524 (Version 1)
Quarter: 2018Q2

REPORT INFORMATION
  Report Type: Other
  Country: NO (occurrence: NO)
  Receive Date: 20180508
  Receipt Date: 20180508
  Transmission Date: 20180711
  Serious: Yes (Life-Threatening, Disabling)
  Sender: FDA-Public Use
  Company Number: NO-NOSTRUM LABORATORIES, INC.-2047421

PATIENT
  Age: 30 Year
  Sex: Female

DRUGS (2)
  1. DIAZEPAM. [Concomitant]
     Active Substance: DIAZEPAM
     Route: 048
  2. CARISOPRODOL. [Suspect]
     Active Substance: CARISOPRODOL
     Indication: INTENTIONAL OVERDOSE
     Route: 048

REACTIONS (6)
  - Pupillary light reflex tests abnormal [None]
  - Heart rate increased [None]
  - Pneumonia aspiration [Recovered/Resolved]
  - Chills [None]
  - Coma [None]
  - Myoclonus [None]
